FAERS Safety Report 23324664 (Version 5)
Quarter: 2024Q2

REPORT INFORMATION
  Report Type: Report from Study
  Country: US (occurrence: US)
  Receive Date: 20231221
  Receipt Date: 20240625
  Transmission Date: 20240716
  Serious: No
  Sender: FDA-Public Use
  Company Number: US-ACADIA PHARMACEUTICALS INC.-ACA-2023-PIM-005482

PATIENT
  Sex: Male

DRUGS (6)
  1. NUPLAZID [Suspect]
     Active Substance: PIMAVANSERIN TARTRATE
     Indication: Parkinson^s disease
     Dosage: 34 MILLIGRAM, QD
     Route: 048
     Dates: start: 20231031
  2. SCOPOLAMINE [Suspect]
     Active Substance: SCOPOLAMINE
  3. BENZONATATE [Suspect]
     Active Substance: BENZONATATE
  4. DONEPEZIL [Concomitant]
     Active Substance: DONEPEZIL\DONEPEZIL HYDROCHLORIDE
     Dosage: 10 MILLIGRAM
  5. CARBIDOPA\LEVODOPA [Concomitant]
     Active Substance: CARBIDOPA\LEVODOPA
     Dosage: 25-100 MG
  6. PANTOPRAZOLE [Concomitant]
     Active Substance: PANTOPRAZOLE
     Dosage: 20 MILLIGRAM

REACTIONS (14)
  - Secretion discharge [Unknown]
  - Rhinorrhoea [Unknown]
  - Drug interaction [Unknown]
  - Fluid intake reduced [Unknown]
  - Cough [Unknown]
  - Diarrhoea [Unknown]
  - Asthenia [Unknown]
  - Fatigue [Unknown]
  - Productive cough [Recovering/Resolving]
  - Cough [Unknown]
  - Constipation [Unknown]
  - Agitation [Not Recovered/Not Resolved]
  - Hallucination [Unknown]
  - Hallucination [Recovering/Resolving]
